FAERS Safety Report 24943798 (Version 1)
Quarter: 2025Q1

REPORT INFORMATION
  Report Type: Spontaneous
  Country: US (occurrence: US)
  Receive Date: 20250207
  Receipt Date: 20250207
  Transmission Date: 20250409
  Serious: No
  Sender: ASCEND THERAPEUTICS US, LLC
  Company Number: US-Ascend Therapeutics US, LLC-2170750

PATIENT
  Age: 54 Year
  Sex: Female

DRUGS (8)
  1. ESTROGEL [Suspect]
     Active Substance: ESTRADIOL
     Indication: Hot flush
     Dates: start: 202406
  2. ESTROGEL [Suspect]
     Active Substance: ESTRADIOL
     Indication: Night sweats
  3. ESTROGEL [Suspect]
     Active Substance: ESTRADIOL
  4. PROGESTERONE [Suspect]
     Active Substance: PROGESTERONE
  5. ENDOMETRIN [Suspect]
     Active Substance: PROGESTERONE
     Dates: start: 2024
  6. COMBIPATCH [Suspect]
     Active Substance: ESTRADIOL\NORETHINDRONE ACETATE
     Dates: start: 202408
  7. COMBIPATCH [Suspect]
     Active Substance: ESTRADIOL\NORETHINDRONE ACETATE
     Dates: start: 202407, end: 202408
  8. COMBIPATCH [Suspect]
     Active Substance: ESTRADIOL\NORETHINDRONE ACETATE
     Dates: start: 202405, end: 202407

REACTIONS (3)
  - Vaginal haemorrhage [Recovered/Resolved]
  - Breast pain [Unknown]
  - Abdominal distension [Unknown]

NARRATIVE: CASE EVENT DATE: 20240101
